FAERS Safety Report 7596229-4 (Version None)
Quarter: 2011Q3

REPORT INFORMATION
  Report Type: 
  Country: None (occurrence: None)
  Receive Date: 20110707
  Receipt Date: 20110628
  Transmission Date: 20111222
  Serious: Yes (Hospitalization, Other)
  Sender: FDA-Public Use
  Company Number: US-AMGEN-USASP2011003084

PATIENT
  Age: 70 Year
  Sex: Female
  Weight: 101.13 kg

DRUGS (3)
  1. ENBREL [Suspect]
     Dosage: 50 MG, 2 TIMES/WK
     Dates: start: 19990101
  2. ENBREL [Suspect]
     Indication: RHEUMATOID ARTHRITIS
     Dosage: 25 MG, 2 TIMES/WK
     Dates: start: 19990316
  3. METHOTREXATE [Concomitant]

REACTIONS (6)
  - MYOCARDIAL INFARCTION [None]
  - SINUSITIS [None]
  - SINUS CONGESTION [None]
  - GENERALISED OEDEMA [None]
  - INJECTION SITE HAEMATOMA [None]
  - INJECTION SITE PAIN [None]
